FAERS Safety Report 26136735 (Version 1)
Quarter: 2025Q4

REPORT INFORMATION
  Report Type: Report from Study
  Country: US (occurrence: US)
  Receive Date: 20251209
  Receipt Date: 20251209
  Transmission Date: 20260117
  Serious: Yes (Hospitalization, Other)
  Sender: ROCHE
  Company Number: US-ROCHE-10000449723

PATIENT
  Age: 88 Year
  Sex: Female

DRUGS (3)
  1. ACTEMRA [Suspect]
     Active Substance: TOCILIZUMAB
     Indication: Giant cell arteritis
     Dosage: 162 MG EVERY OTHER WEEK
     Route: 058
  2. ACTEMRA [Suspect]
     Active Substance: TOCILIZUMAB
     Indication: Polymyalgia rheumatica
     Dosage: 162 MG EVERY OTHER WEEK
     Route: 058
  3. KEVZARA [Concomitant]
     Active Substance: SARILUMAB
     Indication: Polymyalgia rheumatica

REACTIONS (5)
  - Muscular weakness [Unknown]
  - Off label use [Unknown]
  - Ill-defined disorder [Unknown]
  - Blindness unilateral [Recovered/Resolved]
  - Skin discolouration [Unknown]

NARRATIVE: CASE EVENT DATE: 20251117
